FAERS Safety Report 18652217 (Version 1)
Quarter: 2020Q4

REPORT INFORMATION
  Report Type: Other
  Country: None (occurrence: CN)
  Receive Date: 20201223
  Receipt Date: 20201223
  Transmission Date: 20210114
  Serious: Yes (Other)
  Sender: FDA-Public Use
  Company Number: CN-JIANGSU HENGRUI MEDICINE CO., LTD.-2103377

PATIENT
  Age: 50 Year
  Sex: Female
  Weight: 45 kg

DRUGS (4)
  1. BEVACIZUMAB. [Suspect]
     Active Substance: BEVACIZUMAB
     Route: 041
     Dates: start: 20201129, end: 20201129
  2. GIMERACIL AND OTERACIL POTASSIUM CAPSULES [Suspect]
     Active Substance: GIMERACIL\OTERACIL POTASSIUM
     Route: 048
     Dates: start: 20201129, end: 20201203
  3. RALTITREXED FOR INJECTION [Suspect]
     Active Substance: RALTITREXED
     Route: 041
     Dates: start: 20201129, end: 20201129
  4. IRINOTECAN HYDROCHLORIDE INJECTION, 20 MG/ML (2 ML AND 5 ML VIALS) (AN [Suspect]
     Active Substance: IRINOTECAN HYDROCHLORIDE
     Indication: ADENOCARCINOMA OF COLON
     Route: 041
     Dates: start: 20201129, end: 20201129

REACTIONS (1)
  - Drug-induced liver injury [Recovering/Resolving]

NARRATIVE: CASE EVENT DATE: 20201201
